FAERS Safety Report 5519229-4 (Version None)
Quarter: 2007Q4

REPORT INFORMATION
  Report Type: 
  Country: None (occurrence: None)
  Receive Date: 20071114
  Receipt Date: 20071114
  Transmission Date: 20080405
  Serious: No
  Sender: FDA-Public Use
  Company Number: None

PATIENT
  Sex: Male
  Weight: 84.5 kg

DRUGS (2)
  1. CARBOPLATIN [Suspect]
     Dosage: 535 MG
  2. ALIMTA [Suspect]
     Dosage: 1000 MG

REACTIONS (3)
  - BLOOD POTASSIUM DECREASED [None]
  - DEHYDRATION [None]
  - MALAISE [None]
